FAERS Safety Report 9599180 (Version 1)
Quarter: 2013Q4

REPORT INFORMATION
  Report Type: Spontaneous
  Country: US (occurrence: US)
  Receive Date: 20131004
  Receipt Date: 20131004
  Transmission Date: 20140711
  Serious: No
  Sender: FDA-Public Use
  Company Number: US-AMGEN-USASP2013027572

PATIENT
  Age: 64 Year
  Sex: Female
  Weight: 90.25 kg

DRUGS (17)
  1. ENBREL [Suspect]
     Indication: PSORIASIS
     Dosage: UNK
     Route: 058
  2. HUMIRA [Concomitant]
     Dosage: UNK
     Dates: start: 201204
  3. GLUCAGON EMERGENCY KIT [Concomitant]
     Dosage: UNK
  4. NORVASC [Concomitant]
     Dosage: UNK
  5. CLOBETASOL                         /00337102/ [Concomitant]
     Dosage: UNK
  6. MACROBID                           /00024401/ [Concomitant]
     Dosage: UNK
  7. TRIAMCINOLON                       /00031901/ [Concomitant]
     Dosage: UNK, LOTION
  8. NOVOLOG [Concomitant]
     Dosage: UNK
  9. TOPROL [Concomitant]
     Dosage: UNK, XL
  10. NEXIUM                             /01479302/ [Concomitant]
     Dosage: UNK
  11. AMITRIPTYLIN [Concomitant]
     Dosage: UNK
  12. ALTACE [Concomitant]
     Dosage: UNK
  13. CRESTOR [Concomitant]
     Dosage: UNK
  14. VITAMIN D                          /00107901/ [Concomitant]
     Dosage: UNK
  15. ASPIRIN [Concomitant]
     Dosage: UNK
  16. VITAMIN B12                        /00056201/ [Concomitant]
     Dosage: UNK
  17. MAXZIDE [Concomitant]
     Dosage: UNK

REACTIONS (1)
  - Drug effect decreased [Unknown]
